FAERS Safety Report 23456235 (Version 1)
Quarter: 2024Q1

REPORT INFORMATION
  Report Type: Spontaneous
  Country: CN (occurrence: CN)
  Receive Date: 20240130
  Receipt Date: 20240130
  Transmission Date: 20240410
  Serious: Yes (Other)
  Sender: FDA-Public Use
  Company Number: CN-PFIZER INC-PV202400011677

PATIENT
  Age: 10 Year
  Sex: Male
  Weight: 33.2 kg

DRUGS (1)
  1. SOLU-MEDROL [Suspect]
     Active Substance: METHYLPREDNISOLONE SODIUM SUCCINATE
     Indication: Henoch-Schonlein purpura nephritis
     Dosage: 48 MG, 1X/DAY
     Route: 041
     Dates: start: 20231201, end: 20231221

REACTIONS (2)
  - Ocular hypertension [Recovered/Resolved]
  - Off label use [Unknown]

NARRATIVE: CASE EVENT DATE: 20231201
